FAERS Safety Report 16439318 (Version 1)
Quarter: 2019Q2

REPORT INFORMATION
  Report Type: Spontaneous
  Country: US (occurrence: US)
  Receive Date: 20190617
  Receipt Date: 20190617
  Transmission Date: 20190711
  Serious: Yes (Other)
  Sender: FDA-Public Use
  Company Number: US-SA-2019SA161709

PATIENT
  Sex: Female

DRUGS (1)
  1. DUPIXENT [Suspect]
     Active Substance: DUPILUMAB

REACTIONS (4)
  - Carditis [Unknown]
  - Injection site rash [Unknown]
  - Peripheral coldness [Unknown]
  - Cold sweat [Unknown]

NARRATIVE: CASE EVENT DATE: 2019
